FAERS Safety Report 4773107-7 (Version None)
Quarter: 2005Q3

REPORT INFORMATION
  Report Type: 
  Country: None (occurrence: None)
  Receive Date: 20050916
  Receipt Date: 20050905
  Transmission Date: 20060218
  Serious: Yes (Hospitalization, Other)
  Sender: FDA-Public Use
  Company Number: 2005123467

PATIENT
  Age: 75 Year
  Sex: Male
  Weight: 80 kg

DRUGS (13)
  1. SORTIS (ATORVASTATIN) [Suspect]
     Indication: ILL-DEFINED DISORDER
     Dosage: 20 MG (20 MG, 1 IN 1 D), ORAL
     Route: 048
     Dates: start: 20050201, end: 20050613
  2. NEO-MERCAZOLE TAB [Suspect]
     Indication: HYPERTHYROIDISM
     Dosage: 10 MG (10 MG, 1 IN 1 D), ORAL
     Route: 048
     Dates: start: 20050201, end: 20050613
  3. MARCUMAR [Suspect]
     Indication: ILL-DEFINED DISORDER
     Dosage: 3 MG, ORAL
     Route: 048
  4. NEXIUM [Suspect]
     Indication: ILL-DEFINED DISORDER
     Dosage: 40 MG (20 MG, 2 IN 1 D), ORAL
     Route: 048
  5. LAXOBERON (SODIUM PICOSULFATE) [Concomitant]
  6. KONAKION [Concomitant]
  7. TOREM (TORASEMIDE) [Concomitant]
  8. BISOPROLOL FUMARATE [Concomitant]
  9. RYTMONORM (PROPAFENONE HYDROCHLORIDE) [Concomitant]
  10. PRADIF (TAMSULOSIN HYDROCHLORIDE) [Concomitant]
  11. CITALOPRAM HYDROBROMIDE [Concomitant]
  12. RAMIPRIL [Concomitant]
  13. ROCALTROL [Concomitant]

REACTIONS (8)
  - ASTHENIA [None]
  - DRUG INTERACTION [None]
  - NIGHT SWEATS [None]
  - PAIN IN EXTREMITY [None]
  - POLYMYOSITIS [None]
  - RHABDOMYOLYSIS [None]
  - TROPONIN T INCREASED [None]
  - WEIGHT DECREASED [None]
